FAERS Safety Report 11899318 (Version 1)
Quarter: 2016Q1

REPORT INFORMATION
  Report Type: Spontaneous
  Country: US (occurrence: US)
  Receive Date: 20160108
  Receipt Date: 20160108
  Transmission Date: 20160526
  Serious: No
  Sender: FDA-Public Use
  Company Number: US-SA-2015SA168190

PATIENT
  Age: 69 Year
  Sex: Female

DRUGS (1)
  1. AFREZZA [Suspect]
     Active Substance: INSULIN HUMAN
     Dosage: DOSE:4 UNIT(S)
     Route: 065
     Dates: start: 20151007

REACTIONS (3)
  - Blood glucose increased [Unknown]
  - Pharyngeal oedema [Unknown]
  - Drug ineffective [Unknown]
